FAERS Safety Report 4520252-7 (Version None)
Quarter: 2004Q4

REPORT INFORMATION
  Report Type: 
  Country: None (occurrence: None)
  Receive Date: 20041028
  Receipt Date: 20040716
  Transmission Date: 20050328
  Serious: Yes (Other)
  Sender: FDA-Public Use
  Company Number: HQWYE336122JUL04

PATIENT
  Age: 51 Year
  Sex: Female

DRUGS (2)
  1. PREMARIN [Suspect]
     Dates: start: 19920101, end: 20000101
  2. ESTROPIPATE [Suspect]
     Dates: start: 19970101, end: 19980101

REACTIONS (1)
  - CEREBROVASCULAR ACCIDENT [None]
